FAERS Safety Report 6784820-4 (Version None)
Quarter: 2010Q2

REPORT INFORMATION
  Report Type: 
  Country: None (occurrence: None)
  Receive Date: 20100618
  Receipt Date: 20100603
  Transmission Date: 20101027
  Serious: Yes (Death)
  Sender: FDA-Public Use
  Company Number: 20108651

PATIENT
  Age: 62 Year
  Sex: Male

DRUGS (2)
  1. LIORESAL [Suspect]
     Indication: MUSCLE SPASTICITY
     Dosage: 49.96 MCG, DAILY, INTRATHECAL
     Route: 037
  2. ANTI-COAGULANT THERAPY [Concomitant]

REACTIONS (3)
  - MEDICAL DEVICE CHANGE [None]
  - POST PROCEDURAL COMPLICATION [None]
  - PULMONARY EMBOLISM [None]
